FAERS Safety Report 13507880 (Version 1)
Quarter: 2017Q2

REPORT INFORMATION
  Report Type: Spontaneous
  Country: US (occurrence: US)
  Receive Date: 20170503
  Receipt Date: 20170503
  Transmission Date: 20170830
  Serious: No
  Sender: FDA-Public Use
  Company Number: US-PFIZER INC-2017188200

PATIENT
  Age: 17 Year
  Sex: Male

DRUGS (1)
  1. ADVIL [Suspect]
     Active Substance: IBUPROFEN
     Dosage: MAY HAVE TAKEN 10 OR 12

REACTIONS (3)
  - Intentional overdose [Unknown]
  - Pruritus [Recovering/Resolving]
  - Discomfort [Unknown]
